FAERS Safety Report 6669688-9 (Version None)
Quarter: 2010Q2

REPORT INFORMATION
  Report Type: 
  Country: None (occurrence: None)
  Receive Date: 20100402
  Receipt Date: 20100326
  Transmission Date: 20101027
  Serious: Yes (Other)
  Sender: FDA-Public Use
  Company Number: WAES 1003USA04676

PATIENT
  Age: 36 Month
  Sex: Male

DRUGS (2)
  1. SINGULAIR [Suspect]
     Indication: ASTHMA
     Dosage: 4 MG/DAILY PO
     Route: 048
     Dates: start: 20080703, end: 20090402
  2. INTAL [Concomitant]

REACTIONS (2)
  - ADVERSE EVENT [None]
  - PALPITATIONS [None]
